FAERS Safety Report 8151380-5 (Version None)
Quarter: 2012Q1

REPORT INFORMATION
  Report Type: 
  Country: None (occurrence: None)
  Receive Date: 20120220
  Receipt Date: 20120213
  Transmission Date: 20120608
  Serious: Yes (Death)
  Sender: FDA-Public Use
  Company Number: JP-ASTRAZENECA-2012SE08411

PATIENT
  Age: 37 Year
  Sex: Female

DRUGS (14)
  1. SEROQUEL [Suspect]
     Route: 048
  2. PSYCHOTROPIC AGENTS [Concomitant]
     Route: 048
  3. MYONAL [Concomitant]
     Route: 048
  4. U PAN [Concomitant]
     Route: 048
  5. LOXOPROFEN [Concomitant]
     Route: 048
  6. LOPERAMIDE HCL [Concomitant]
     Route: 048
  7. SEDES G [Concomitant]
     Route: 048
  8. LANSOPRAZOLE [Concomitant]
  9. LULLAN [Concomitant]
     Route: 048
  10. MOTILIUM [Concomitant]
     Route: 048
  11. TEGRETOL [Concomitant]
     Route: 048
  12. GOREI-SAN [Concomitant]
     Route: 048
  13. RHYTHMY [Concomitant]
     Route: 048
  14. ZOPICLONE [Concomitant]
     Route: 048

REACTIONS (1)
  - DEATH [None]
